FAERS Safety Report 9938676 (Version 2)
Quarter: 2014Q1

REPORT INFORMATION
  Report Type: Spontaneous
  Country: US (occurrence: US)
  Receive Date: 20140303
  Receipt Date: 20140303
  Transmission Date: 20141002
  Serious: Yes (Other)
  Sender: FDA-Public Use
  Company Number: US-JNJFOC-20140203357

PATIENT
  Sex: Male

DRUGS (1)
  1. STELARA [Suspect]
     Indication: PSORIASIS
     Route: 058

REACTIONS (5)
  - Thyroiditis acute [Unknown]
  - Spinal osteoarthritis [Unknown]
  - Myalgia [Unknown]
  - Dysgeusia [Unknown]
  - Arthralgia [Unknown]
